FAERS Safety Report 12335438 (Version 2)
Quarter: 2016Q2

REPORT INFORMATION
  Report Type: Report from Study
  Country: US (occurrence: US)
  Receive Date: 20160504
  Receipt Date: 20160512
  Transmission Date: 20160815
  Serious: No
  Sender: FDA-Public Use
  Company Number: US-AMGEN-USASL2016056748

PATIENT
  Age: 55 Year
  Sex: Male

DRUGS (1)
  1. ENBREL [Suspect]
     Active Substance: ETANERCEPT
     Indication: RHEUMATOID ARTHRITIS
     Dosage: UNK
     Route: 065
     Dates: start: 20160415

REACTIONS (5)
  - Influenza [Unknown]
  - Device malfunction [Unknown]
  - Injection site extravasation [Unknown]
  - Drug dose omission [Unknown]
  - Erythema [Unknown]

NARRATIVE: CASE EVENT DATE: 2016
